FAERS Safety Report 6192849-2 (Version None)
Quarter: 2009Q2

REPORT INFORMATION
  Report Type: 
  Country: None (occurrence: None)
  Receive Date: 20090518
  Receipt Date: 20090506
  Transmission Date: 20091009
  Serious: Yes (Other)
  Sender: FDA-Public Use
  Company Number: US-PFIZER INC-2006098358

PATIENT
  Sex: Female
  Weight: 72.562 kg

DRUGS (7)
  1. PROVERA [Suspect]
     Indication: HORMONE REPLACEMENT THERAPY
     Dosage: UNK
     Route: 048
     Dates: start: 19940718, end: 19990101
  2. PREMARIN [Suspect]
     Indication: HORMONE REPLACEMENT THERAPY
     Dosage: UNK
     Route: 065
     Dates: start: 19950430
  3. ESTRACE [Suspect]
     Indication: HORMONE REPLACEMENT THERAPY
     Dosage: UNK
     Route: 065
     Dates: start: 19940718, end: 19990101
  4. ALUPENT [Concomitant]
     Indication: ASTHMA
     Dosage: UNK
     Dates: end: 20051001
  5. NASALIDE [Concomitant]
     Indication: SINUS DISORDER
     Dosage: UNK
     Dates: end: 20051001
  6. SALBUTAMOL [Concomitant]
     Indication: ASTHMA
     Dosage: UNK
     Dates: end: 20051001
  7. QUIBRON [Concomitant]
     Indication: SINUS DISORDER
     Dosage: UNK
     Dates: end: 20051001

REACTIONS (1)
  - BREAST CANCER [None]
